FAERS Safety Report 23064640 (Version 2)
Quarter: 2023Q4

REPORT INFORMATION
  Report Type: Spontaneous
  Country: ES (occurrence: ES)
  Receive Date: 20231013
  Receipt Date: 20231211
  Transmission Date: 20240110
  Serious: Yes (Other)
  Sender: FDA-Public Use
  Company Number: ES-AEMPS-1386526

PATIENT
  Age: 44 Year
  Sex: Male

DRUGS (5)
  1. ERTAPENEM [Suspect]
     Active Substance: ERTAPENEM
     Indication: Surgery
     Dosage: 1 GRAM, IN TOTAL
     Route: 040
     Dates: start: 20211104, end: 20211104
  2. MIDAZOLAM [Suspect]
     Active Substance: MIDAZOLAM
     Indication: Surgery
     Dosage: UNK
     Route: 040
     Dates: start: 20211104, end: 20211104
  3. PROPOFOL [Suspect]
     Active Substance: PROPOFOL
     Indication: Surgery
     Dosage: UNK
     Route: 040
     Dates: start: 20211104, end: 20211104
  4. ROCURONIUM BROMIDE [Suspect]
     Active Substance: ROCURONIUM BROMIDE
     Indication: Surgery
     Dosage: UNK
     Route: 040
     Dates: start: 20211104, end: 20211104
  5. FENTANYL [Suspect]
     Active Substance: FENTANYL\FENTANYL CITRATE
     Indication: Surgery
     Dosage: UNK
     Route: 040
     Dates: start: 20211104, end: 20211104

REACTIONS (1)
  - Urticaria [Recovered/Resolved]

NARRATIVE: CASE EVENT DATE: 20211104
